FAERS Safety Report 15120466 (Version 2)
Quarter: 2018Q3

REPORT INFORMATION
  Report Type: Spontaneous
  Country: US (occurrence: US)
  Receive Date: 20180709
  Receipt Date: 20180720
  Transmission Date: 20181010
  Serious: Yes (Other)
  Sender: FDA-Public Use
  Company Number: US-AMGEN-USASP2018092695

PATIENT
  Age: 37 Year
  Sex: Male
  Weight: 73.92 kg

DRUGS (4)
  1. METHOTREXATE. [Concomitant]
     Active Substance: METHOTREXATE
     Indication: BLADDER CANCER
     Dosage: 50 MG, Q2WK
     Dates: start: 20180626
  2. CISPLATIN W/MANNITOL [Concomitant]
     Indication: BLADDER CANCER
     Dosage: 135G?37.5G, UNK
     Dates: start: 20180627
  3. VELBAN [Suspect]
     Active Substance: VINBLASTINE SULFATE
     Indication: BLADDER CANCER
     Dosage: 6 MG, Q2WK
     Route: 065
     Dates: start: 20180627
  4. NEULASTA [Suspect]
     Active Substance: PEGFILGRASTIM
     Indication: NEUTROPENIA
     Dosage: 6 MG, AFTER CHEMO
     Route: 058
     Dates: start: 20180628

REACTIONS (1)
  - Neutropenia [Unknown]

NARRATIVE: CASE EVENT DATE: 20180703
